FAERS Safety Report 18293080 (Version 2)
Quarter: 2020Q4

REPORT INFORMATION
  Report Type: Spontaneous
  Country: US (occurrence: US)
  Receive Date: 20200921
  Receipt Date: 20201216
  Transmission Date: 20210113
  Serious: No
  Sender: FDA-Public Use
  Company Number: US-CATALYST PHARMACEUTICALS, INC-2020CAT00224

PATIENT
  Age: 75 Year
  Sex: Female
  Weight: 52.61 kg

DRUGS (15)
  1. FIRDAPSE [Suspect]
     Active Substance: AMIFAMPRIDINE PHOSPHATE
     Dosage: UNK
     Route: 048
     Dates: start: 2020
  2. LISINOPRIL. [Concomitant]
     Active Substance: LISINOPRIL
  3. FIRDAPSE [Suspect]
     Active Substance: AMIFAMPRIDINE PHOSPHATE
     Indication: MYASTHENIC SYNDROME
     Dosage: 10 MG, 3X/DAY
     Route: 048
     Dates: start: 2020, end: 20200614
  4. GABAPENTIN. [Concomitant]
     Active Substance: GABAPENTIN
  5. PYRIDOSTIGMINE [Concomitant]
     Active Substance: PYRIDOSTIGMINE
  6. METFORMIN [Concomitant]
     Active Substance: METFORMIN HYDROCHLORIDE
  7. FIRDAPSE [Suspect]
     Active Substance: AMIFAMPRIDINE PHOSPHATE
     Dosage: UNK ONCE OR TWICE A DAILY
     Route: 048
     Dates: start: 2020, end: 2020
  8. LIVALO [Concomitant]
     Active Substance: PITAVASTATIN CALCIUM
  9. ESCITALOPRAM [Concomitant]
     Active Substance: ESCITALOPRAM OXALATE
  10. VITALIC [Concomitant]
     Dosage: 10 MG (1/2 TABLET)
  11. FIRDAPSE [Suspect]
     Active Substance: AMIFAMPRIDINE PHOSPHATE
     Indication: NEOPLASM
     Dosage: 5 MG, 3X/DAY
     Route: 048
     Dates: start: 20200615, end: 2020
  12. OMEPRAZOLE. [Concomitant]
     Active Substance: OMEPRAZOLE
  13. UNSPECIFIED SUPPLEMENTS / DIETARY SUPPLEMENTS [Concomitant]
  14. VITAMIN C [Concomitant]
     Active Substance: ASCORBIC ACID
  15. LORTAB [Concomitant]
     Active Substance: ACETAMINOPHEN\HYDROCODONE BITARTRATE

REACTIONS (8)
  - Paraesthesia [Recovering/Resolving]
  - Drug ineffective [Not Recovered/Not Resolved]
  - Muscle spasms [Recovering/Resolving]
  - Intentional product use issue [Unknown]
  - Hyperhidrosis [Not Recovered/Not Resolved]
  - Feeling abnormal [Unknown]
  - Fatigue [Not Recovered/Not Resolved]
  - Headache [Not Recovered/Not Resolved]

NARRATIVE: CASE EVENT DATE: 2020
